FAERS Safety Report 24786527 (Version 1)
Quarter: 2024Q4

REPORT INFORMATION
  Report Type: Spontaneous
  Country: JP (occurrence: JP)
  Receive Date: 20241230
  Receipt Date: 20241230
  Transmission Date: 20250115
  Serious: Yes (Other)
  Sender: JOHNSON AND JOHNSON
  Company Number: JP-JNJFOC-20241262216

PATIENT

DRUGS (1)
  1. SELEXIPAG [Suspect]
     Active Substance: SELEXIPAG
     Indication: Pulmonary hypertension
     Route: 048

REACTIONS (4)
  - Right ventricular failure [Unknown]
  - Pneumonia [Unknown]
  - Multiple organ dysfunction syndrome [Unknown]
  - Therapeutic product effect incomplete [Unknown]
